FAERS Safety Report 12302354 (Version 1)
Quarter: 2016Q2

REPORT INFORMATION
  Report Type: Spontaneous
  Country: FI (occurrence: FI)
  Receive Date: 20160425
  Receipt Date: 20160425
  Transmission Date: 20160815
  Serious: Yes (Death, Other)
  Sender: FDA-Public Use
  Company Number: FI-HQ SPECIALTY-FI-2016INT000195

PATIENT
  Age: 55 Year
  Sex: Male

DRUGS (2)
  1. CISPLATIN. [Suspect]
     Active Substance: CISPLATIN
     Indication: BLADDER CANCER
     Dosage: 70 MG/M2, ON DAY 2
  2. GEMCITABINE [Suspect]
     Active Substance: GEMCITABINE\GEMCITABINE HYDROCHLORIDE
     Indication: BLADDER CANCER
     Dosage: 1000 MG/M2, ON DAY 1 AND 15

REACTIONS (10)
  - Oedema peripheral [Unknown]
  - Skin ulcer [Unknown]
  - Cyanosis [Unknown]
  - Peripheral ischaemia [Unknown]
  - Dry skin [Unknown]
  - Sepsis [Fatal]
  - Cardiac failure [Unknown]
  - Ejection fraction decreased [Unknown]
  - Pericardial effusion [Unknown]
  - Gangrene [Unknown]
